FAERS Safety Report 7274348-X (Version None)
Quarter: 2011Q1

REPORT INFORMATION
  Report Type: 
  Country: None (occurrence: None)
  Receive Date: 20110131
  Receipt Date: 20110131
  Transmission Date: 20110831
  Serious: Yes (Hospitalization)
  Sender: FDA-Public Use
  Company Number: None

PATIENT
  Sex: Female
  Weight: 62.1 kg

DRUGS (3)
  1. AMIODARONE HCL [Concomitant]
  2. ASPIRIN [Concomitant]
  3. PRADAXA [Suspect]
     Indication: ATRIAL FIBRILLATION
     Dates: start: 20101223, end: 20110101

REACTIONS (2)
  - HAEMATOMA [None]
  - DRUG INTERACTION [None]
